FAERS Safety Report 8970004 (Version 1)
Quarter: 2012Q4

REPORT INFORMATION
  Report Type: 
  Country: CZ (occurrence: CZ)
  Receive Date: 20121217
  Receipt Date: 20121217
  Transmission Date: 20130627
  Serious: Yes (Hospitalization, Other)
  Sender: FDA-Public Use
  Company Number: CZ-B.I. PHARMACEUTICALS,INC./RIDGEFIELD-2012-AP-01105AP

PATIENT
  Age: 75 Year
  Sex: Female

DRUGS (4)
  1. PRADAXA [Suspect]
     Indication: ATRIAL FIBRILLATION
     Dosage: 220 mg
     Route: 048
     Dates: start: 20120620, end: 20121031
  2. VEROSPIRON [Concomitant]
     Route: 048
  3. FURON [Concomitant]
     Dosage: 17.1429 mg
  4. NEBIVOLOL [Concomitant]
     Dosage: 1.0714 mg
     Route: 048

REACTIONS (2)
  - Hydrothorax [Unknown]
  - Epistaxis [Recovered/Resolved]
